FAERS Safety Report 22138495 (Version 1)
Quarter: 2023Q1

REPORT INFORMATION
  Report Type: Spontaneous
  Country: FI (occurrence: FI)
  Receive Date: 20230326
  Receipt Date: 20230326
  Transmission Date: 20230417
  Serious: Yes (Hospitalization)
  Sender: FDA-Public Use
  Company Number: None

PATIENT
  Sex: Female

DRUGS (8)
  1. PANTOPRAZOLE [Suspect]
     Active Substance: PANTOPRAZOLE
     Indication: Product used for unknown indication
     Route: 065
  2. ALLOPURINOL [Suspect]
     Active Substance: ALLOPURINOL
     Indication: Product used for unknown indication
     Route: 065
  3. BORTEZOMIB [Concomitant]
     Active Substance: BORTEZOMIB
     Indication: Product used for unknown indication
     Dates: start: 20230124
  4. TAKHZYRO [Concomitant]
     Active Substance: LANADELUMAB-FLYO
     Indication: Product used for unknown indication
     Dates: start: 20230124
  5. ENOXAPARIN [Concomitant]
     Active Substance: ENOXAPARIN
     Indication: Product used for unknown indication
     Dates: start: 20230124
  6. DEXAMETHASONE [Concomitant]
     Active Substance: DEXAMETHASONE
     Indication: Product used for unknown indication
     Dates: start: 20230124
  7. SULFAMETHOXAZOLE\TRIMETHOPRIM [Concomitant]
     Active Substance: SULFAMETHOXAZOLE\TRIMETHOPRIM
     Indication: Product used for unknown indication
     Dates: start: 20230125
  8. ACYCLOVIR [Concomitant]
     Active Substance: ACYCLOVIR
     Indication: Product used for unknown indication
     Dates: start: 20230124

REACTIONS (1)
  - Drug reaction with eosinophilia and systemic symptoms [Not Recovered/Not Resolved]

NARRATIVE: CASE EVENT DATE: 20230206
